FAERS Safety Report 7796488-9 (Version None)
Quarter: 2011Q4

REPORT INFORMATION
  Report Type: 
  Country: None (occurrence: None)
  Receive Date: 20111005
  Receipt Date: 20110926
  Transmission Date: 20120403
  Serious: No
  Sender: FDA-Public Use
  Company Number: US-BIOGENIDEC-2011BI036946

PATIENT
  Age: 55 Year
  Sex: Female

DRUGS (4)
  1. AVONEX [Suspect]
     Route: 030
     Dates: start: 20080922
  2. AVONEX [Suspect]
     Route: 030
     Dates: start: 20050408, end: 20060713
  3. IBUPROFEN (ADVIL) [Concomitant]
     Indication: PREMEDICATION
  4. AVONEX [Suspect]
     Indication: MULTIPLE SCLEROSIS
     Route: 030
     Dates: start: 20100514

REACTIONS (4)
  - NAUSEA [None]
  - GROIN PAIN [None]
  - OEDEMA PERIPHERAL [None]
  - INFLUENZA LIKE ILLNESS [None]
